FAERS Safety Report 7957889-9 (Version None)
Quarter: 2011Q4

REPORT INFORMATION
  Report Type: 
  Country: None (occurrence: None)
  Receive Date: 20111205
  Receipt Date: 20111201
  Transmission Date: 20120403
  Serious: Yes (Hospitalization, Other)
  Sender: FDA-Public Use
  Company Number: US-BAYER-2011-113978

PATIENT
  Age: 62 Year
  Sex: Male
  Weight: 165.53 kg

DRUGS (9)
  1. LANTUS [Concomitant]
  2. LEVOTHYROXINE SODIUM [Concomitant]
  3. PROPRANOLOL [Concomitant]
  4. NEXAVAR [Suspect]
     Indication: HEPATIC NEOPLASM MALIGNANT
     Dosage: 200 MG, UNK
     Route: 048
     Dates: start: 20111101
  5. NEXAVAR [Suspect]
     Dosage: 400 MG AM, 200 MG PM
     Route: 048
  6. SIMVASTATIN [Concomitant]
  7. MULTI 50+ [Concomitant]
  8. OMEPRAZOLE [Concomitant]
  9. NOVOLOG [Concomitant]
     Dosage: PENFILL

REACTIONS (5)
  - ADRENAL HAEMORRHAGE [None]
  - FLATULENCE [None]
  - DYSPEPSIA [None]
  - HEPATIC NEOPLASM MALIGNANT [None]
  - HAEMORRHOIDS [None]
